FAERS Safety Report 6329283-8 (Version None)
Quarter: 2009Q3

REPORT INFORMATION
  Report Type: 
  Country: None (occurrence: None)
  Receive Date: 20090824
  Receipt Date: 20090824
  Transmission Date: 20100115
  Serious: Yes (Hospitalization)
  Sender: FDA-Public Use
  Company Number: None

PATIENT
  Age: 51 Year
  Sex: Female

DRUGS (2)
  1. SIMVASTATIN [Suspect]
     Indication: DYSLIPIDAEMIA
     Dosage: 20MG DAILY PO
     Route: 048
  2. NIACIN [Suspect]
     Indication: DYSLIPIDAEMIA
     Dosage: 500 MG DAILY PO
     Route: 048

REACTIONS (5)
  - BACK PAIN [None]
  - CHEST PAIN [None]
  - DYSPNOEA [None]
  - POLLAKIURIA [None]
  - RHABDOMYOLYSIS [None]
